FAERS Safety Report 4574532-X (Version None)
Quarter: 2005Q1

REPORT INFORMATION
  Report Type: 
  Country: None (occurrence: None)
  Receive Date: 20050208
  Receipt Date: 20031007
  Transmission Date: 20050727
  Serious: No
  Sender: FDA-Public Use
  Company Number: US-GLAXOSMITHKLINE-A0429242A

PATIENT
  Age: 24 Year
  Sex: Female

DRUGS (2)
  1. PAXIL [Suspect]
     Indication: DEPRESSION
     Dosage: 10MG PER DAY
     Route: 048
     Dates: start: 20010201, end: 20031004
  2. BIRTH CONTROL PILLS [Concomitant]

REACTIONS (18)
  - ASTHENIA [None]
  - DIARRHOEA [None]
  - DISTURBANCE IN ATTENTION [None]
  - DIZZINESS [None]
  - DRUG WITHDRAWAL SYNDROME [None]
  - HOT FLUSH [None]
  - HYPERHIDROSIS [None]
  - INSOMNIA [None]
  - IRRITABILITY [None]
  - MIGRAINE [None]
  - MUSCLE SPASMS [None]
  - MUSCLE TWITCHING [None]
  - NIGHTMARE [None]
  - PANIC ATTACK [None]
  - THINKING ABNORMAL [None]
  - TINNITUS [None]
  - TREMOR [None]
  - VOMITING [None]
